FAERS Safety Report 20084564 (Version 1)
Quarter: 2021Q4

REPORT INFORMATION
  Report Type: Spontaneous
  Country: FR (occurrence: FR)
  Receive Date: 20211118
  Receipt Date: 20211118
  Transmission Date: 20220303
  Serious: Yes (Other)
  Sender: FDA-Public Use
  Company Number: FR-ABBVIE-21K-056-4166090-00

PATIENT
  Sex: Female

DRUGS (2)
  1. VALPROATE SODIUM [Suspect]
     Active Substance: VALPROATE SODIUM
     Indication: Epilepsy
     Route: 065
  2. VALPROATE SODIUM [Suspect]
     Active Substance: VALPROATE SODIUM
     Dosage: DOSE INCREASED
     Route: 065
     Dates: start: 201303

REACTIONS (10)
  - Meningioma [Unknown]
  - Hypothyroidism [Unknown]
  - Epileptic aura [Unknown]
  - Trismus [Unknown]
  - Fall [Unknown]
  - Discomfort [Unknown]
  - Weight increased [Unknown]
  - Somnolence [Unknown]
  - Epilepsy [Unknown]
  - Asthenia [Unknown]

NARRATIVE: CASE EVENT DATE: 20040901
